FAERS Safety Report 5603177-5 (Version None)
Quarter: 2008Q1

REPORT INFORMATION
  Report Type: 
  Country: None (occurrence: None)
  Receive Date: 20080123
  Receipt Date: 20080108
  Transmission Date: 20080703
  Serious: Yes (Other)
  Sender: FDA-Public Use
  Company Number: 2008000112

PATIENT
  Age: 64 Year
  Sex: Male
  Weight: 87.0906 kg

DRUGS (1)
  1. FRESHNURST LISTERINE (MENTHOL, METHYL SALICYLATE, EUCALYPTOL, THYMOL) [Suspect]
     Indication: DENTAL DISORDER PROPHYLAXIS
     Dosage: 1 CAPFUL ONCE, ORAL
     Route: 048
     Dates: start: 20071230, end: 20071230

REACTIONS (6)
  - APHONIA [None]
  - ORAL DISCOMFORT [None]
  - ORAL PAIN [None]
  - PHARYNGEAL HYPOAESTHESIA [None]
  - PHARYNGOLARYNGEAL PAIN [None]
  - THERMAL BURN [None]
